FAERS Safety Report 6453494-4 (Version None)
Quarter: 2009Q4

REPORT INFORMATION
  Report Type: 
  Country: None (occurrence: None)
  Receive Date: 20091124
  Receipt Date: 20091117
  Transmission Date: 20100525
  Serious: Yes (Hospitalization)
  Sender: FDA-Public Use
  Company Number: FR-ROCHE-669511

PATIENT
  Sex: Male

DRUGS (9)
  1. ROCEPHIN [Suspect]
     Indication: DRUG USE FOR UNKNOWN INDICATION
     Dosage: DOSE: 1 DROP; FREQUENCY: OD
     Route: 042
     Dates: start: 20090823, end: 20090914
  2. NEXIUM [Suspect]
     Indication: DRUG USE FOR UNKNOWN INDICATION
     Route: 048
     Dates: start: 20090823, end: 20090913
  3. FUNGIZONE [Suspect]
     Indication: DRUG USE FOR UNKNOWN INDICATION
     Route: 048
     Dates: start: 20090827, end: 20090913
  4. ANDROCUR [Suspect]
     Indication: DRUG USE FOR UNKNOWN INDICATION
     Route: 048
     Dates: start: 20090901, end: 20090910
  5. ZOMETA [Suspect]
     Indication: DRUG USE FOR UNKNOWN INDICATION
     Dosage: FORM: 1 INFUSION; SINGLE INTAKE
     Route: 042
     Dates: start: 20090831, end: 20090831
  6. DISTILBENE [Suspect]
     Indication: DRUG USE FOR UNKNOWN INDICATION
     Route: 065
     Dates: start: 20090911
  7. LOVENOX [Concomitant]
  8. GAVISCON [Concomitant]
  9. EDUCTYL [Concomitant]

REACTIONS (1)
  - CYTOLYTIC HEPATITIS [None]
